FAERS Safety Report 5596161-1 (Version None)
Quarter: 2008Q1

REPORT INFORMATION
  Report Type: 
  Country: None (occurrence: None)
  Receive Date: 20080118
  Receipt Date: 20080115
  Transmission Date: 20080703
  Serious: Yes (Life-Threatening, Hospitalization)
  Sender: FDA-Public Use
  Company Number: US-GILEAD-2008-0014784

PATIENT
  Sex: Female
  Weight: 72.186 kg

DRUGS (9)
  1. LETAIRIS [Suspect]
     Indication: PULMONARY HYPERTENSION
     Route: 048
     Dates: start: 20071001
  2. REVATIO [Concomitant]
     Indication: PULMONARY HYPERTENSION
     Route: 048
  3. VENTAVIS [Concomitant]
     Indication: PULMONARY HYPERTENSION
     Route: 048
  4. PREDNISONE [Concomitant]
     Indication: PULMONARY HYPERTENSION
     Route: 048
  5. LASIX [Concomitant]
     Indication: PULMONARY HYPERTENSION
     Route: 048
  6. OXYGEN [Concomitant]
     Indication: PULMONARY HYPERTENSION
     Dosage: 2-4 L
     Route: 055
  7. LIPITOR [Concomitant]
     Indication: HYPERCHOLESTEROLAEMIA
     Route: 048
  8. POTASSIUM CHLORIDE [Concomitant]
     Indication: MEDICAL DIET
     Route: 048
  9. COUMADIN [Concomitant]
     Indication: THROMBOPHLEBITIS
     Route: 048

REACTIONS (2)
  - HEADACHE [None]
  - THROMBOSIS [None]
